FAERS Safety Report 24696019 (Version 1)
Quarter: 2024Q4

REPORT INFORMATION
  Report Type: Report from Study
  Country: US (occurrence: US)
  Receive Date: 20241204
  Receipt Date: 20241204
  Transmission Date: 20250115
  Serious: Yes (Other)
  Sender: ALEXION PHARMACEUTICALS
  Company Number: US-AstraZeneca-CH-00755441A

PATIENT

DRUGS (4)
  1. OLAPARIB [Suspect]
     Active Substance: OLAPARIB
     Indication: Ovarian cancer
  2. OLAPARIB [Suspect]
     Active Substance: OLAPARIB
  3. OLAPARIB [Suspect]
     Active Substance: OLAPARIB
  4. OLAPARIB [Suspect]
     Active Substance: OLAPARIB

REACTIONS (5)
  - Neuropathy peripheral [Not Recovered/Not Resolved]
  - Lacrimation increased [Not Recovered/Not Resolved]
  - Blood pressure measurement [Not Recovered/Not Resolved]
  - Cough [Not Recovered/Not Resolved]
  - Diarrhoea [Not Recovered/Not Resolved]
